FAERS Safety Report 12332313 (Version 1)
Quarter: 2016Q2

REPORT INFORMATION
  Report Type: Spontaneous
  Country: US (occurrence: US)
  Receive Date: 20160504
  Receipt Date: 20160504
  Transmission Date: 20160815
  Serious: No
  Sender: FDA-Public Use
  Company Number: US-ROCHE-1658909

PATIENT
  Sex: Male
  Weight: 82.63 kg

DRUGS (3)
  1. ESBRIET [Suspect]
     Active Substance: PIRFENIDONE
     Indication: IDIOPATHIC PULMONARY FIBROSIS
     Dosage: 3 CAPSULES THRICE A DAY
     Route: 048
     Dates: start: 20150804
  2. ESBRIET [Suspect]
     Active Substance: PIRFENIDONE
     Dosage: 2 CAPSULES THRICE A DAY
     Route: 048
     Dates: start: 20150804, end: 2015
  3. ESBRIET [Suspect]
     Active Substance: PIRFENIDONE
     Dosage: 1 CAPSULES THRICE A DAY
     Route: 048
     Dates: start: 2015

REACTIONS (8)
  - Muscle spasms [Unknown]
  - Dyspepsia [Unknown]
  - Tremor [Unknown]
  - Diarrhoea [Unknown]
  - Abdominal pain [Unknown]
  - Dyspnoea [Unknown]
  - Nasal congestion [Unknown]
  - Productive cough [Unknown]
